FAERS Safety Report 19359581 (Version 4)
Quarter: 2021Q3

REPORT INFORMATION
  Report Type: Other
  Country: US (occurrence: US)
  Receive Date: 20210601
  Receipt Date: 20210721
  Transmission Date: 20211014
  Serious: Yes (Death, Hospitalization, Other)
  Sender: FDA-Public Use
  Company Number: US-ACORDA-ACO_169115_2021

PATIENT
  Age: 83 Year
  Sex: Male

DRUGS (1)
  1. INBRIJA [Suspect]
     Active Substance: LEVODOPA
     Indication: PARKINSON^S DISEASE
     Dosage: 2 DOSAGE FORM, PRN
     Dates: start: 20210311, end: 20210513

REACTIONS (3)
  - Fall [Unknown]
  - Parkinson^s disease [Fatal]
  - Hip fracture [Recovered/Resolved]

NARRATIVE: CASE EVENT DATE: 20210514
